FAERS Safety Report 5796132-6 (Version None)
Quarter: 2008Q3

REPORT INFORMATION
  Report Type: 
  Country: None (occurrence: None)
  Receive Date: 20080701
  Receipt Date: 20080626
  Transmission Date: 20090109
  Serious: Yes (Other)
  Sender: FDA-Public Use
  Company Number: ES-BRISTOL-MYERS SQUIBB COMPANY-14242150

PATIENT
  Age: 42 Year
  Sex: Female

DRUGS (6)
  1. TAXOL [Suspect]
     Indication: BREAST CANCER
     Dosage: THERAPY DATES: 13MAY08;THERAPY DUR:71 DAYS
     Route: 042
     Dates: start: 20080228, end: 20080228
  2. ZOMETA [Suspect]
     Indication: HYPERCALCAEMIA OF MALIGNANCY
     Route: 042
     Dates: start: 20080226, end: 20080520
  3. FORTECORTIN [Concomitant]
     Indication: PREMEDICATION
     Dosage: FORTECORTIN 40MG-1 AMPULE
     Route: 042
     Dates: start: 20080226, end: 20080513
  4. POLARAMINE [Concomitant]
     Indication: PREMEDICATION
     Dosage: POLARAMINE 5MG/5 AMPULES INJECTABLE
     Route: 042
     Dates: start: 20080226, end: 20080513
  5. YATROX [Concomitant]
     Indication: PREMEDICATION
     Dosage: 5 AMPULES
     Route: 042
     Dates: start: 20080226, end: 20080513
  6. ZANTAC [Concomitant]
     Indication: PREMEDICATION
     Dosage: 5 AMPULES-5ML
     Route: 042

REACTIONS (1)
  - CHEMICAL BURN OF SKIN [None]
